FAERS Safety Report 16419882 (Version 3)
Quarter: 2019Q3

REPORT INFORMATION
  Report Type: Report from Study
  Country: US (occurrence: US)
  Receive Date: 20190612
  Receipt Date: 20190724
  Transmission Date: 20191004
  Serious: Yes (Other)
  Sender: FDA-Public Use
  Company Number: US-ROCHE-2329937

PATIENT
  Age: 49 Year
  Sex: Female

DRUGS (1)
  1. OCREVUS [Suspect]
     Active Substance: OCRELIZUMAB
     Indication: RELAPSING MULTIPLE SCLEROSIS
     Dosage: MOST RECENT INFUSION: 10/DEC/2018
     Route: 065
     Dates: start: 20180611

REACTIONS (9)
  - Relapsing multiple sclerosis [Unknown]
  - Throat irritation [Recovered/Resolved]
  - Throat tightness [Recovered/Resolved]
  - Pharyngeal paraesthesia [Recovered/Resolved]
  - Dermatitis contact [Not Recovered/Not Resolved]
  - Urinary tract infection [Unknown]
  - Ear disorder [Recovered/Resolved]
  - Oral herpes [Unknown]
  - Urticaria [Recovered/Resolved]

NARRATIVE: CASE EVENT DATE: 201812
